FAERS Safety Report 7832620-6 (Version None)
Quarter: 2011Q4

REPORT INFORMATION
  Report Type: 
  Country: None (occurrence: None)
  Receive Date: 20111024
  Receipt Date: 20111014
  Transmission Date: 20120403
  Serious: No
  Sender: FDA-Public Use
  Company Number: US-BIOGENIDEC-2011BI016418

PATIENT
  Sex: Female

DRUGS (4)
  1. TYSABRI [Suspect]
     Indication: MULTIPLE SCLEROSIS
     Route: 042
     Dates: start: 20100601
  2. AVONEX [Concomitant]
     Route: 030
     Dates: start: 20100401
  3. AVONEX [Concomitant]
     Route: 030
     Dates: start: 20030701
  4. AVONEX [Concomitant]
     Indication: MULTIPLE SCLEROSIS
     Route: 030
     Dates: start: 20100601

REACTIONS (6)
  - PAIN IN EXTREMITY [None]
  - HEADACHE [None]
  - POOR VENOUS ACCESS [None]
  - MUSCULOSKELETAL DISORDER [None]
  - DECREASED APPETITE [None]
  - ANXIETY [None]
